FAERS Safety Report 5123945-6 (Version None)
Quarter: 2006Q3

REPORT INFORMATION
  Report Type: 
  Country: None (occurrence: None)
  Receive Date: 20060811
  Receipt Date: 20060620
  Transmission Date: 20061208
  Serious: No
  Sender: FDA-Public Use
  Company Number: S06-USA-02416-01

PATIENT
  Age: 41 Year
  Sex: Female

DRUGS (5)
  1. NAMENDA [Suspect]
     Indication: MIGRAINE
     Dosage: 5 MG QD PO
     Route: 048
     Dates: start: 20060602, end: 20060608
  2. NAMENDA [Suspect]
     Indication: MIGRAINE
     Dosage: 5 MG BID PO
     Route: 048
     Dates: start: 20060609, end: 20060615
  3. NAMENDA [Suspect]
     Indication: MIGRAINE
     Dosage: 15 MG QD PO
     Route: 048
     Dates: start: 20060616
  4. SYNTHROID [Concomitant]
  5. FLEXERIL [Concomitant]

REACTIONS (1)
  - ALOPECIA [None]
